FAERS Safety Report 9649290 (Version 2)
Quarter: 2013Q4

REPORT INFORMATION
  Report Type: Report from Study
  Country: IE (occurrence: IE)
  Receive Date: 20131028
  Receipt Date: 20131121
  Transmission Date: 20140711
  Serious: Yes (Hospitalization)
  Sender: FDA-Public Use
  Company Number: IE-GLAXOSMITHKLINE-Z0020189C

PATIENT
  Age: 84 Year
  Sex: Female

DRUGS (2)
  1. ELTROMBOPAG [Suspect]
     Indication: THROMBOCYTOPENIA
     Route: 048
     Dates: start: 20130826, end: 20130910
  2. PLACEBO [Suspect]
     Indication: THROMBOCYTOPENIA
     Route: 048
     Dates: start: 20130528, end: 20130818

REACTIONS (1)
  - Bone pain [Not Recovered/Not Resolved]
